FAERS Safety Report 12864117 (Version 1)
Quarter: 2016Q4

REPORT INFORMATION
  Report Type: Spontaneous
  Country: US (occurrence: US)
  Receive Date: 20161020
  Receipt Date: 20161020
  Transmission Date: 20170207
  Serious: No
  Sender: FDA-Public Use
  Company Number: US-ASTRAZENECA-2016SF07705

PATIENT
  Sex: Male
  Weight: 99.8 kg

DRUGS (8)
  1. DILAUDID [Concomitant]
     Active Substance: HYDROMORPHONE HYDROCHLORIDE
     Indication: PAIN
     Dosage: CONTINUOUSLY
     Route: 037
  2. PROVIGIL [Concomitant]
     Active Substance: MODAFINIL
     Indication: FATIGUE
  3. VITAMIN B [Concomitant]
     Active Substance: VITAMIN B
     Dates: start: 2016
  4. MOVANTIK [Suspect]
     Active Substance: NALOXEGOL OXALATE
     Indication: CONSTIPATION
     Route: 048
     Dates: start: 2016
  5. XANAX [Concomitant]
     Active Substance: ALPRAZOLAM
     Indication: BACK PAIN
  6. MORPHINE [Concomitant]
     Active Substance: MORPHINE
  7. MOVANTIK [Suspect]
     Active Substance: NALOXEGOL OXALATE
     Indication: CONSTIPATION
     Dosage: UNKNOWN, TWICE A DAY
     Route: 048
  8. VALIUM [Concomitant]
     Active Substance: DIAZEPAM
     Indication: BACK PAIN

REACTIONS (5)
  - Accidental overdose [Unknown]
  - Faeces hard [Unknown]
  - Body height decreased [Unknown]
  - Drug dose omission [Unknown]
  - Drug ineffective [Unknown]
